FAERS Safety Report 4395754-7 (Version None)
Quarter: 2004Q3

REPORT INFORMATION
  Report Type: 
  Country: None (occurrence: None)
  Receive Date: 20040713
  Receipt Date: 20040520
  Transmission Date: 20050211
  Serious: Yes (Hospitalization)
  Sender: FDA-Public Use
  Company Number: PHHO2004PE07321

PATIENT
  Age: 53 Year
  Sex: Female

DRUGS (9)
  1. GLEEVEC [Suspect]
     Indication: CHRONIC MYELOID LEUKAEMIA
     Dosage: 400 MG/D
     Route: 048
     Dates: start: 20040113, end: 20040130
  2. GLEEVEC [Suspect]
     Dosage: NO MEDICATION
     Dates: start: 20040131, end: 20040202
  3. GLEEVEC [Suspect]
     Dosage: 200 MG/D
     Route: 048
     Dates: start: 20040203, end: 20040211
  4. GLEEVEC [Suspect]
     Dosage: 400 MG/D
     Route: 048
     Dates: start: 20040212, end: 20040228
  5. GLEEVEC [Suspect]
     Dosage: NO MEDICATION
     Dates: start: 20040229, end: 20040511
  6. GLEEVEC [Suspect]
     Dosage: 300 MG/D
     Route: 048
     Dates: start: 20040512, end: 20040526
  7. GLEEVEC [Suspect]
     Dosage: 100 MG/D
     Route: 048
     Dates: start: 20040527, end: 20040610
  8. GLEEVEC [Suspect]
     Dosage: 200 MG/D
     Route: 048
     Dates: start: 20040611, end: 20040617
  9. GLEEVEC [Suspect]
     Dosage: 100 MG/D
     Route: 048
     Dates: start: 20040618

REACTIONS (6)
  - ACARIASIS [None]
  - CELLULITIS [None]
  - INFECTION PARASITIC [None]
  - PANNICULITIS [None]
  - PRURITUS [None]
  - SKIN LESION [None]
